FAERS Safety Report 13290541 (Version 2)
Quarter: 2017Q2

REPORT INFORMATION
  Report Type: Spontaneous
  Country: JP (occurrence: JP)
  Receive Date: 20170302
  Receipt Date: 20170428
  Transmission Date: 20170830
  Serious: Yes (Other)
  Sender: FDA-Public Use
  Company Number: JP-PFIZER INC-2017085766

PATIENT
  Sex: Female

DRUGS (2)
  1. WYPAX [Suspect]
     Active Substance: LORAZEPAM
     Dosage: UNK, AS NEEDED
     Route: 048
     Dates: start: 200703
  2. WYPAX [Suspect]
     Active Substance: LORAZEPAM
     Dosage: 3 MG, DAILY (0.5 MG X 2 TABLETS AFTER EVERY MEAL)
     Route: 048

REACTIONS (4)
  - Dysarthria [Unknown]
  - Disorganised speech [Unknown]
  - Dry mouth [Unknown]
  - Cerebral infarction [Unknown]
